FAERS Safety Report 12784338 (Version 1)
Quarter: 2016Q3

REPORT INFORMATION
  Report Type: Spontaneous
  Country: DE (occurrence: DE)
  Receive Date: 20160927
  Receipt Date: 20160927
  Transmission Date: 20161109
  Serious: Yes (Other)
  Sender: FDA-Public Use
  Company Number: DE-BEH-200712537

PATIENT
  Age: 85 Year
  Sex: Female
  Weight: 80 kg

DRUGS (2)
  1. SANDOGLOBULIN [Suspect]
     Active Substance: HUMAN IMMUNOGLOBULIN G
     Indication: PARAPARESIS
  2. SANDOGLOBULIN [Suspect]
     Active Substance: HUMAN IMMUNOGLOBULIN G
     Indication: GUILLAIN-BARRE SYNDROME
     Dosage: DAILY DOSE QUANTITY: 32, DAILY DOSE UNIT: G
     Route: 042

REACTIONS (3)
  - Fibrin D dimer increased [Unknown]
  - Pulmonary embolism [Unknown]
  - Platelet count decreased [Unknown]
